FAERS Safety Report 5242391-8 (Version None)
Quarter: 2007Q1

REPORT INFORMATION
  Report Type: 
  Country: None (occurrence: None)
  Receive Date: 20070216
  Receipt Date: 20070216
  Transmission Date: 20070707
  Serious: No
  Sender: FDA-Public Use
  Company Number: None

PATIENT
  Age: 61 Year
  Sex: Female
  Weight: 74.3899 kg

DRUGS (3)
  1. FLUTICASONE PROPONATE PENN LABORATORIES, UK FOR PARPHARM [Suspect]
     Indication: LARYNGITIS
     Dosage: 2 SPRAYS DAILY OR MORE NASAL
     Route: 045
     Dates: start: 20060801, end: 20070215
  2. FLUTICASONE PROPONATE PENN LABORATORIES, UK FOR PARPHARM [Suspect]
     Indication: NASAL CONGESTION
     Dosage: 2 SPRAYS DAILY OR MORE NASAL
     Route: 045
     Dates: start: 20060801, end: 20070215
  3. FLUTICASONE PROPONATE PENN LABORATORIES, UK FOR PARPHARM [Suspect]
     Indication: SINUSITIS
     Dosage: 2 SPRAYS DAILY OR MORE NASAL
     Route: 045
     Dates: start: 20060801, end: 20070215

REACTIONS (6)
  - DRUG EFFECT DECREASED [None]
  - EAR DISCOMFORT [None]
  - EYE PRURITUS [None]
  - NASAL CONGESTION [None]
  - POSTNASAL DRIP [None]
  - THERAPEUTIC RESPONSE UNEXPECTED WITH DRUG SUBSTITUTION [None]
